FAERS Safety Report 9436517 (Version 1)
Quarter: 2013Q3

REPORT INFORMATION
  Report Type: Spontaneous
  Country: US (occurrence: US)
  Receive Date: 20130802
  Receipt Date: 20130802
  Transmission Date: 20140515
  Serious: No
  Sender: FDA-Public Use
  Company Number: US-OPTIMER-20130035

PATIENT
  Age: 58 Year
  Sex: Male

DRUGS (14)
  1. DIFICID [Suspect]
     Indication: CLOSTRIDIUM DIFFICILE COLITIS
     Dosage: UNK
  2. PROGRAF [Concomitant]
     Dosage: UNK
  3. MYFORTIC [Concomitant]
     Dosage: UNK UNK, BID
  4. PREDNISONE [Concomitant]
     Dosage: 10 MG, QD
  5. SIMVASTATIN [Concomitant]
     Dosage: 10 MG, UNK
  6. BACTRIM [Concomitant]
     Dosage: UNK UNK, QD
  7. TRAMADOL [Concomitant]
     Dosage: 50 MG, PRN EVERY 6 HOURS
  8. TAMSULOSIN [Concomitant]
     Dosage: 0.4 MG, QD
  9. LISINOPRIL [Concomitant]
     Dosage: UNK
  10. GLYBURIDE [Concomitant]
     Dosage: 5 MG, QD
  11. FUROSEMIDE [Concomitant]
     Dosage: UNK
  12. FAMOTIDINE [Concomitant]
     Dosage: UNK
  13. COLCRYS [Concomitant]
     Dosage: 0.6 MG, QD
  14. ASPIRIN [Concomitant]
     Dosage: 81 MG, QD

REACTIONS (2)
  - Neutropenia [Unknown]
  - Anal fissure [Unknown]
